FAERS Safety Report 14759620 (Version 1)
Quarter: 2018Q2

REPORT INFORMATION
  Report Type: Spontaneous
  Country: US (occurrence: US)
  Receive Date: 20180413
  Receipt Date: 20180413
  Transmission Date: 20180711
  Serious: Yes (Hospitalization, Other)
  Sender: FDA-Public Use
  Company Number: US-TARO-2018TAR00275

PATIENT
  Age: 54 Year
  Sex: Female
  Weight: 79.37 kg

DRUGS (2)
  1. CICLOPIROX OLAMINE CREAM USP 0.77% [Suspect]
     Active Substance: CICLOPIROX OLAMINE
     Indication: FUNGAL SKIN INFECTION
     Dosage: SIZE OF DIME TWO TO THREE TIMES PER MONTH
     Route: 061
     Dates: start: 2013
  2. CICLOPIROX OLAMINE CREAM USP 0.77% [Suspect]
     Active Substance: CICLOPIROX OLAMINE
     Dosage: SIZE OF DIME TWO TO THREE TIMES PER MONTH

REACTIONS (4)
  - Meningitis [Recovered/Resolved]
  - Incorrect drug administration duration [Not Recovered/Not Resolved]
  - Expired product administered [Not Recovered/Not Resolved]
  - Product quality issue [Not Recovered/Not Resolved]

NARRATIVE: CASE EVENT DATE: 2013
